FAERS Safety Report 7531073 (Version 1)
Quarter: 2020Q3

REPORT INFORMATION
  Report Type: Spontaneous
  Country: MK (occurrence: MK)
  Receive Date: 20100806
  Receipt Date: 20100806
  Transmission Date: 20201105
  Serious: Yes (Other)
  Sender: FDA-Public Use
  Company Number: PHHY2010MK48775

PATIENT
  Age: 58 Year
  Sex: Female

DRUGS (2)
  1. PAMIDRONATE DISODIUM. [Suspect]
     Active Substance: PAMIDRONATE DISODIUM
     Indication: PLASMA CELL MYELOMA
     Dosage: 90 MG, UNK
     Route: 042
     Dates: start: 200408, end: 200910
  2. IBANDRONIC ACID. [Suspect]
     Active Substance: IBANDRONIC ACID
     Indication: PLASMA CELL MYELOMA
     Dosage: 6 MG, UNK
     Route: 042
     Dates: start: 200408, end: 200910

REACTIONS (2)
  - Osteonecrosis of jaw [Recovering/Resolving]
  - Surgery [Unknown]

NARRATIVE: CASE EVENT DATE: 20100101
